FAERS Safety Report 8403371-4 (Version None)
Quarter: 2012Q2

REPORT INFORMATION
  Report Type: 
  Country: None (occurrence: None)
  Receive Date: 20120601
  Receipt Date: 20120529
  Transmission Date: 20120825
  Serious: No
  Sender: FDA-Public Use
  Company Number: US-PFIZER INC-2012128967

PATIENT
  Sex: Male

DRUGS (1)
  1. LYRICA [Suspect]
     Dosage: UNK

REACTIONS (5)
  - URTICARIA [None]
  - PAIN IN EXTREMITY [None]
  - RASH MACULAR [None]
  - OEDEMA PERIPHERAL [None]
  - DISCOMFORT [None]
